FAERS Safety Report 6369845-5 (Version None)
Quarter: 2009Q3

REPORT INFORMATION
  Report Type: 
  Country: None (occurrence: None)
  Receive Date: 20090923
  Receipt Date: 20070504
  Transmission Date: 20100115
  Serious: Yes (Other)
  Sender: FDA-Public Use
  Company Number: US-ASTRAZENECA-2006UW10810

PATIENT
  Age: 44 Year
  Sex: Female
  Weight: 108.9 kg

DRUGS (29)
  1. SEROQUEL [Suspect]
     Indication: DEPRESSION
     Dosage: 20 MG
     Route: 048
  2. SEROQUEL [Suspect]
     Indication: ANXIETY
     Dosage: 20 MG
     Route: 048
  3. SEROQUEL [Suspect]
     Route: 048
  4. SEROQUEL [Suspect]
     Route: 048
  5. ZYPREXA [Concomitant]
     Dosage: 20 MG
     Dates: start: 20040101
  6. ZOLOFT [Concomitant]
     Indication: ANXIETY
     Dosage: 25 MG - 50 MG
  7. TRAZODONE HCL [Concomitant]
     Indication: INSOMNIA
     Dosage: 12.5MG - 50MG
  8. TRAZODONE HCL [Concomitant]
  9. EFFEXOR [Concomitant]
     Dosage: 37.5MG -75MG
     Dates: start: 19961120, end: 19961216
  10. CYLERT [Concomitant]
     Dates: end: 19970327
  11. ATIVAN [Concomitant]
     Dosage: 0.25 MG - 2 MG
  12. PHENTERMINE HYDROCHLORIDE [Concomitant]
  13. WELLBUTRIN [Concomitant]
     Dosage: 37.5MG - 200MG
  14. CELEXA [Concomitant]
     Dates: end: 20040303
  15. ATROVENT [Concomitant]
     Indication: BRONCHITIS
     Route: 045
  16. LORAZEPAM [Concomitant]
     Indication: ANXIETY
     Dosage: 0.5MG - 2MG
  17. SYNTHROID [Concomitant]
     Dosage: 25 MCG - 75 MCG
  18. TYLENOL (CAPLET) [Concomitant]
     Indication: PYREXIA
  19. UNITHROID [Concomitant]
     Dosage: 25MCG - 50MCG
  20. MOTRIN [Concomitant]
     Indication: PAIN
  21. CIPROFLAXACIN [Concomitant]
  22. PHENAZOPYRIDINE HCL TAB [Concomitant]
  23. LEVOXYL [Concomitant]
  24. PAROXETINE HCL [Concomitant]
     Indication: AFFECTIVE DISORDER
     Dosage: 10MG - 20MG
  25. PAROXETINE HCL [Concomitant]
     Indication: ANXIETY
     Dosage: 10MG - 20MG
  26. PAROXETINE HCL [Concomitant]
     Indication: PANIC ATTACK
     Dosage: 10MG - 20MG
  27. RESTORIL [Concomitant]
  28. SERZONE [Concomitant]
  29. TRIMOX [Concomitant]

REACTIONS (4)
  - BLOOD TRIGLYCERIDES INCREASED [None]
  - DIABETES MELLITUS [None]
  - DIABETIC KETOACIDOSIS [None]
  - OBESITY [None]
